FAERS Safety Report 8262354-8 (Version None)
Quarter: 2012Q2

REPORT INFORMATION
  Report Type: 
  Country: None (occurrence: None)
  Receive Date: 20120405
  Receipt Date: 20120329
  Transmission Date: 20120825
  Serious: Yes (Hospitalization)
  Sender: FDA-Public Use
  Company Number: JP-JNJFOC-20120209316

PATIENT
  Age: 65 Year
  Sex: Male

DRUGS (2)
  1. FENTANYL-100 [Suspect]
     Route: 062
  2. FENTANYL-100 [Suspect]
     Indication: CANCER PAIN
     Route: 062
     Dates: start: 20111201

REACTIONS (2)
  - HOSPITALISATION [None]
  - DYSURIA [None]
